FAERS Safety Report 5679121-1 (Version None)
Quarter: 2008Q1

REPORT INFORMATION
  Report Type: 
  Country: None (occurrence: None)
  Receive Date: 20080325
  Receipt Date: 20080319
  Transmission Date: 20080703
  Serious: Yes (Other)
  Sender: FDA-Public Use
  Company Number: JP-MERCK-0712USA09083

PATIENT
  Age: 72 Year
  Sex: Female

DRUGS (1)
  1. PRIMAXIN [Suspect]
     Indication: PNEUMONIA
     Route: 042
     Dates: start: 20071116, end: 20071205

REACTIONS (3)
  - LIP HAEMORRHAGE [None]
  - PANCYTOPENIA [None]
  - STAPHYLOCOCCAL INFECTION [None]
